FAERS Safety Report 15323008 (Version 2)
Quarter: 2018Q3

REPORT INFORMATION
  Report Type: Report from Study
  Country: DE (occurrence: DE)
  Receive Date: 20180827
  Receipt Date: 20180904
  Transmission Date: 20181010
  Serious: Yes (Hospitalization)
  Sender: FDA-Public Use
  Company Number: PHHO2018DE009609

PATIENT
  Age: 51 Year
  Sex: Female
  Weight: 106 kg

DRUGS (7)
  1. AIN457 [Suspect]
     Active Substance: SECUKINUMAB
     Indication: AXIAL SPONDYLOARTHRITIS
     Dosage: 150 MG, LOAD
     Route: 058
     Dates: start: 20180403, end: 20180702
  2. TILIDIN [Concomitant]
     Active Substance: NALOXONE HYDROCHLORIDE\TILIDINE HYDROCHLORIDE
     Dosage: 100/8 MG BID
     Route: 048
     Dates: start: 20180702
  3. PRAMIPEXOLE. [Concomitant]
     Active Substance: PRAMIPEXOLE
     Indication: RESTLESS LEGS SYNDROME
     Dosage: 0.35 MG, QD
     Route: 048
     Dates: start: 201601
  4. ARCOXIA [Concomitant]
     Active Substance: ETORICOXIB
     Indication: BURSITIS
     Dosage: 120 MG, QD
     Route: 048
     Dates: start: 20180702
  5. AMINEURIN [Concomitant]
     Active Substance: AMITRIPTYLINE HYDROCHLORIDE
     Indication: RESTLESS LEGS SYNDROME
     Dosage: 50 MG, QD
     Route: 048
     Dates: start: 2000
  6. TILIDIN [Concomitant]
     Active Substance: NALOXONE HYDROCHLORIDE\TILIDINE HYDROCHLORIDE
     Indication: OSTEOARTHRITIS
     Dosage: 50/4 MG BID
     Route: 048
     Dates: start: 20180607
  7. PREGABADOR [Concomitant]
     Active Substance: PREGABALIN
     Indication: RESTLESS LEGS SYNDROME
     Dosage: 150 MG, QD
     Route: 048
     Dates: start: 201601

REACTIONS (2)
  - Back pain [Unknown]
  - Arthralgia [Unknown]

NARRATIVE: CASE EVENT DATE: 20180813
